FAERS Safety Report 23317350 (Version 3)
Quarter: 2024Q4

REPORT INFORMATION
  Report Type: Spontaneous
  Country: US (occurrence: US)
  Receive Date: 20231219
  Receipt Date: 20241017
  Transmission Date: 20250114
  Serious: No
  Sender: ROCHE
  Company Number: US-ROCHE-3307646

PATIENT
  Age: 18 Year
  Sex: Male

DRUGS (2)
  1. HEMLIBRA [Suspect]
     Active Substance: EMICIZUMAB-KXWH
     Indication: Factor VIII deficiency
     Route: 058
     Dates: start: 201911
  2. HEMLIBRA [Suspect]
     Active Substance: EMICIZUMAB-KXWH
     Route: 058
     Dates: start: 201911

REACTIONS (4)
  - Haemorrhage [Not Recovered/Not Resolved]
  - Face injury [Unknown]
  - Contusion [Unknown]
  - Swelling [Unknown]

NARRATIVE: CASE EVENT DATE: 20230304
